FAERS Safety Report 9029828 (Version 1)
Quarter: 2013Q1

REPORT INFORMATION
  Report Type: Spontaneous
  Country: US (occurrence: US)
  Receive Date: 20130124
  Receipt Date: 20130124
  Transmission Date: 20140127
  Serious: Yes (Other)
  Sender: FDA-Public Use
  Company Number: CHPA2013US001342

PATIENT
  Age: 55 Year
  Sex: Female

DRUGS (2)
  1. EX-LAX REG STR CHOCOLATED LAX PCS SEN [Suspect]
     Indication: BOWEL MOVEMENT IRREGULARITY
     Dosage: 2 DF, ONCE OR TWICE A DAY
     Route: 048
  2. EX-LAX MAX STR LAX PILLS SENNA [Suspect]
     Indication: BOWEL MOVEMENT IRREGULARITY
     Dosage: 2 DF, UNK
     Route: 048
     Dates: start: 2012, end: 2012

REACTIONS (4)
  - Rib fracture [Not Recovered/Not Resolved]
  - Vomiting [Recovered/Resolved]
  - Decreased activity [Not Recovered/Not Resolved]
  - Nausea [Recovered/Resolved]
